FAERS Safety Report 20955583 (Version 1)
Quarter: 2022Q2

REPORT INFORMATION
  Report Type: Spontaneous
  Country: US (occurrence: US)
  Receive Date: 20220614
  Receipt Date: 20220614
  Transmission Date: 20220720
  Serious: Yes (Other)
  Sender: FDA-Public Use
  Company Number: US-MLMSERVICE-20190724-1861454-1

PATIENT
  Age: 46 Year
  Sex: Male

DRUGS (14)
  1. PROPRANOLOL HYDROCHLORIDE [Suspect]
     Active Substance: PROPRANOLOL HYDROCHLORIDE
     Indication: Paroxysmal sympathetic hyperactivity
     Dosage: UNK
     Route: 065
  2. PROPRANOLOL HYDROCHLORIDE [Suspect]
     Active Substance: PROPRANOLOL HYDROCHLORIDE
     Indication: Off label use
  3. PROPOFOL [Concomitant]
     Active Substance: PROPOFOL
     Indication: Sedative therapy
     Dosage: LOW DOSE
     Route: 065
  4. PROPOFOL [Concomitant]
     Active Substance: PROPOFOL
     Dosage: 45-60 ?G/KG/MIN
     Route: 065
  5. PROPOFOL [Concomitant]
     Active Substance: PROPOFOL
     Dosage: 50 ?G/KG/MIN
     Route: 065
  6. FENTANYL [Concomitant]
     Active Substance: FENTANYL
     Indication: Mechanical ventilation complication
     Dosage: UNK, PRN
  7. FENTANYL [Concomitant]
     Active Substance: FENTANYL
     Dosage: 100 ?G/KG/MIN
  8. FENTANYL [Concomitant]
     Active Substance: FENTANYL
     Dosage: 50 ?G/KG/MIN
  9. SODIUM ACETATE [Concomitant]
     Active Substance: SODIUM ACETATE
     Indication: Prophylaxis
     Dosage: UNK
  10. SODIUM ACETATE [Concomitant]
     Active Substance: SODIUM ACETATE
     Indication: Hyponatraemia
  11. SALINE [Concomitant]
     Active Substance: SODIUM CHLORIDE
     Indication: Intracranial pressure increased
     Dosage: UNK, SINGLE
     Route: 065
  12. CLONIDINE [Concomitant]
     Active Substance: CLONIDINE
     Indication: Paroxysmal sympathetic hyperactivity
     Route: 065
  13. GABAPENTIN [Concomitant]
     Active Substance: GABAPENTIN
     Indication: Paroxysmal sympathetic hyperactivity
     Route: 065
  14. HEPARIN [Concomitant]
     Active Substance: HEPARIN SODIUM
     Indication: Thrombosis prophylaxis
     Route: 041

REACTIONS (4)
  - Bradycardia [Unknown]
  - Off label use [Unknown]
  - Product use issue [Unknown]
  - Product use in unapproved indication [Unknown]
